FAERS Safety Report 4677123-5 (Version None)
Quarter: 2005Q2

REPORT INFORMATION
  Report Type: 
  Country: None (occurrence: None)
  Receive Date: 20050525
  Receipt Date: 20050525
  Transmission Date: 20051028
  Serious: Yes (Hospitalization)
  Sender: FDA-Public Use
  Company Number: None

PATIENT
  Age: 54 Year
  Sex: Male
  Weight: 93.441 kg

DRUGS (11)
  1. XELODA [Suspect]
     Indication: PANCREATIC CARCINOMA
     Dosage: 1800/1650MG  QAM/QPM Q WEEK   ORAL
     Route: 048
     Dates: start: 20050328, end: 20050523
  2. DIOVAN [Concomitant]
  3. ZOFRAN [Concomitant]
  4. PROTONIX [Concomitant]
  5. PANGESTYME [Concomitant]
  6. OXYCODONE HCL [Concomitant]
  7. DURAGESIC-100 [Concomitant]
  8. MARINOL [Concomitant]
  9. MEGACE [Concomitant]
  10. ZOLOFT [Concomitant]
  11. SENOKOT [Concomitant]

REACTIONS (1)
  - PULMONARY EMBOLISM [None]
